FAERS Safety Report 4319380-0 (Version None)
Quarter: 2004Q1

REPORT INFORMATION
  Report Type: 
  Country: None (occurrence: None)
  Receive Date: 20040318
  Receipt Date: 20040318
  Transmission Date: 20041129
  Serious: No
  Sender: FDA-Public Use
  Company Number: None

PATIENT
  Sex: Male
  Weight: 73 kg

DRUGS (16)
  1. CIMETIDINE [Suspect]
     Indication: GASTROOESOPHAGEAL REFLUX DISEASE
     Dosage: 400MG QD ORAL
     Route: 048
     Dates: start: 19980101, end: 20031215
  2. COMBVIENT [Concomitant]
  3. AEROBID [Concomitant]
  4. ATROVENT [Concomitant]
  5. ALBUTEROL [Concomitant]
  6. DSS [Concomitant]
  7. BENZONATATE [Concomitant]
  8. FLEXERIL [Concomitant]
  9. CIMETIDINE HCL [Concomitant]
  10. VICODIN [Concomitant]
  11. LISINOPRIL [Concomitant]
  12. PREDNISONE [Concomitant]
  13. THEOCHRON [Concomitant]
  14. VIAGRA [Concomitant]
  15. SIMVASTATIN [Concomitant]
  16. TERAZOSIN HCL [Concomitant]

REACTIONS (3)
  - BREAST MASS [None]
  - GYNAECOMASTIA [None]
  - POST PROCEDURAL PAIN [None]
